FAERS Safety Report 18396798 (Version 1)
Quarter: 2020Q4

REPORT INFORMATION
  Report Type: Report from Study
  Country: US (occurrence: US)
  Receive Date: 20201019
  Receipt Date: 20201019
  Transmission Date: 20210114
  Serious: Yes (Hospitalization)
  Sender: FDA-Public Use
  Company Number: US-BIOGEN-2020BI00934859

PATIENT
  Sex: Female

DRUGS (1)
  1. SPINRAZA [Suspect]
     Active Substance: NUSINERSEN
     Indication: SPINAL MUSCULAR ATROPHY
     Route: 037

REACTIONS (3)
  - Rhinovirus infection [Recovered/Resolved]
  - Pneumonia [Recovered/Resolved]
  - Increased bronchial secretion [Unknown]

NARRATIVE: CASE EVENT DATE: 20200706
